FAERS Safety Report 8934362 (Version 10)
Quarter: 2014Q2

REPORT INFORMATION
  Report Type: Report from Study
  Country: FR (occurrence: FR)
  Receive Date: 20121129
  Receipt Date: 20140611
  Transmission Date: 20141212
  Serious: Yes (Hospitalization)
  Sender: FDA-Public Use
  Company Number: FR-ROCHE-1156802

PATIENT
  Age: 63 Year
  Sex: Female
  Weight: 54 kg

DRUGS (6)
  1. TRASTUZUMAB [Suspect]
     Indication: HER-2 POSITIVE BREAST CANCER
     Dosage: DATE OF LAST DOSE PRIOR TO SAE: 22/OCT/2012
     Route: 042
     Dates: start: 20121022, end: 20121111
  2. CAPECITABINE [Suspect]
     Indication: HER-2 POSITIVE BREAST CANCER
     Route: 048
     Dates: start: 20121022
  3. CAPECITABINE [Suspect]
     Route: 048
     Dates: end: 20121111
  4. LEXAPRO [Concomitant]
     Route: 065
     Dates: start: 2012
  5. XANAX [Concomitant]
     Route: 065
     Dates: start: 20120928
  6. LEXOMIL [Concomitant]
     Route: 065
     Dates: start: 20120928

REACTIONS (1)
  - General physical health deterioration [Recovered/Resolved with Sequelae]
